FAERS Safety Report 5177430-6 (Version None)
Quarter: 2006Q4

REPORT INFORMATION
  Report Type: 
  Country: None (occurrence: None)
  Receive Date: 20061218
  Receipt Date: 20060823
  Transmission Date: 20070319
  Serious: Yes (Disabling)
  Sender: FDA-Public Use
  Company Number: US-ROCHE-461284

PATIENT
  Age: 82 Year
  Sex: Female
  Weight: 56.7 kg

DRUGS (5)
  1. KLONOPIN [Suspect]
     Indication: SLEEP DISORDER THERAPY
     Dosage: ALSO GIVEN FOR ANXIETY
     Route: 048
     Dates: start: 19920615
  2. KLONOPIN [Suspect]
     Dosage: DOSE DECREASED TO 1 AND 3/8TH MG EVERY 5 DAYS
     Route: 048
  3. CLONAZEPAM [Concomitant]
     Indication: SLEEP DISORDER THERAPY
     Dosage: DOSE REPORTED TO BE 1 AND 3/8TH DAILY.
     Route: 048
  4. LEVOXYL [Concomitant]
     Indication: HYPOTHYROIDISM
     Route: 048
  5. MIRTAZAPINE [Concomitant]
     Indication: SLEEP DISORDER THERAPY
     Route: 048

REACTIONS (9)
  - ASTHENIA [None]
  - BALANCE DISORDER [None]
  - CLUMSINESS [None]
  - DEPENDENCE [None]
  - DIZZINESS [None]
  - FALL [None]
  - HEADACHE [None]
  - HYPERHIDROSIS [None]
  - SOMNOLENCE [None]
